FAERS Safety Report 10132809 (Version 1)
Quarter: 2014Q2

REPORT INFORMATION
  Report Type: Spontaneous
  Country: GB (occurrence: GB)
  Receive Date: 20140428
  Receipt Date: 20140428
  Transmission Date: 20141212
  Serious: Yes (Other)
  Sender: FDA-Public Use
  Company Number: GB-GLAXOSMITHKLINE-B0988965A

PATIENT
  Sex: Female

DRUGS (1)
  1. NIQUITIN MINI LOZENGES 4MG [Suspect]
     Indication: EX-TOBACCO USER
     Route: 002
     Dates: start: 2011

REACTIONS (2)
  - Dependence [Not Recovered/Not Resolved]
  - Exposure during pregnancy [Unknown]
